FAERS Safety Report 14240507 (Version 2)
Quarter: 2017Q4

REPORT INFORMATION
  Report Type: Spontaneous
  Country: IT (occurrence: IT)
  Receive Date: 20171130
  Receipt Date: 20171215
  Transmission Date: 20180321
  Serious: Yes (Hospitalization, Other)
  Sender: FDA-Public Use
  Company Number: IT-BAYER-2017-226677

PATIENT
  Age: 41 Year
  Sex: Female

DRUGS (10)
  1. CYPROTERONE ACETATE 50 [IN FEMALE] [Suspect]
     Active Substance: CYPROTERONE ACETATE
     Indication: TRANSGENDER HORMONAL THERAPY
     Dosage: 50 MG, QD
  2. LEUPROLIDE ACE [Suspect]
     Active Substance: LEUPROLIDE ACETATE
     Indication: FEMINISATION ACQUIRED
     Dosage: 3.75 MG, UNK
  3. CLIMARA [Suspect]
     Active Substance: ESTRADIOL
     Indication: FEMINISATION ACQUIRED
     Dosage: 2 MG, QD
     Route: 062
  4. LEUPROLIDE ACE [Suspect]
     Active Substance: LEUPROLIDE ACETATE
     Indication: FEMINISATION ACQUIRED
     Dosage: 2 MG, UNK
  5. LEUPROLIDE ACE [Suspect]
     Active Substance: LEUPROLIDE ACETATE
     Indication: FEMINISATION ACQUIRED
     Dosage: 1 MG, UNK
  6. CYPROTERONE ACETATE 50 [IN FEMALE] [Suspect]
     Active Substance: CYPROTERONE ACETATE
     Indication: FEMINISATION ACQUIRED
  7. LEUPROLIDE ACE [Suspect]
     Active Substance: LEUPROLIDE ACETATE
     Indication: TRANSGENDER HORMONAL THERAPY
     Dosage: 50 MG, UNK
  8. CLIMARA [Suspect]
     Active Substance: ESTRADIOL
     Indication: FEMINISATION ACQUIRED
     Dosage: 1 MG, QD
     Route: 062
  9. CLIMARA [Suspect]
     Active Substance: ESTRADIOL
     Indication: FEMINISATION ACQUIRED
     Dosage: 3 MG, QD
     Route: 062
  10. LEUPROLIDE ACE [Suspect]
     Active Substance: LEUPROLIDE ACETATE
     Indication: FEMINISATION ACQUIRED
     Dosage: 3 MG, UNK

REACTIONS (2)
  - Off label use [Unknown]
  - Meningioma [Recovered/Resolved]
